FAERS Safety Report 15681413 (Version 1)
Quarter: 2018Q4

REPORT INFORMATION
  Report Type: Report from Study
  Country: US (occurrence: US)
  Receive Date: 20181203
  Receipt Date: 20181203
  Transmission Date: 20190205
  Serious: Yes (Life-Threatening, Hospitalization)
  Sender: FDA-Public Use
  Company Number: US-MYLANLABS-2018M1089507

PATIENT
  Age: 58 Year
  Sex: Male
  Weight: 110 kg

DRUGS (24)
  1. KETOCONAZOLE COX [Concomitant]
     Dosage: UNK
     Dates: start: 20141014
  2. CISPLATIN. [Suspect]
     Active Substance: CISPLATIN
     Indication: CHOLANGIOCARCINOMA
     Dosage: 25 MILLIGRAM/SQ. METER
     Route: 042
     Dates: start: 20180830, end: 20180912
  3. ATEZOLIZUMAB. [Suspect]
     Active Substance: ATEZOLIZUMAB
     Indication: CHOLANGIOCARCINOMA
     Dosage: 1200 MILLIGRAM
     Dates: start: 20180829, end: 20180829
  4. BIOTIN [Concomitant]
     Active Substance: BIOTIN
     Dosage: UNK
     Dates: start: 20161229
  5. ACETAMINOPHEN + COD. PHOSP. [Concomitant]
     Active Substance: ACETAMINOPHEN\CODEINE PHOSPHATE
     Dosage: UNK
     Dates: start: 20180905
  6. COLCHICINE A [Concomitant]
     Dosage: UNK
     Dates: start: 20170705
  7. CISPLATIN. [Suspect]
     Active Substance: CISPLATIN
     Dosage: 25 MILLIGRAM/SQ. METER
     Route: 042
     Dates: start: 20180927
  8. GEMCITABINE [Suspect]
     Active Substance: GEMCITABINE\GEMCITABINE HYDROCHLORIDE
     Indication: CHOLANGIOCARCINOMA
     Dosage: 1000 MILLIGRAM/SQ. METER
     Route: 042
     Dates: start: 20180830, end: 20180912
  9. OMEPRAZOLE                         /00661202/ [Concomitant]
     Active Substance: OMEPRAZOLE SODIUM
     Dosage: UNK
     Dates: start: 20180625
  10. DOCUSATE SODIUM. [Concomitant]
     Active Substance: DOCUSATE SODIUM
     Dosage: UNK
     Dates: start: 20180905
  11. SARNA                              /01326901/ [Concomitant]
     Dosage: UNK
     Dates: start: 20180905
  12. GLUCOSAMINE CHONDROITIN            /01430901/ [Concomitant]
     Dosage: UNK
     Dates: start: 20121022
  13. CALCIUM CARBONATE AND VITAMIN D [Concomitant]
     Active Substance: CALCIUM CARBONATE\VITAMIN D
     Dosage: UNK
     Dates: start: 20171030
  14. ASPIRIN                            /00002701/ [Concomitant]
     Active Substance: ASPIRIN
     Dosage: UNK
     Dates: start: 20121212
  15. PREGABALIN +PHARMA [Concomitant]
     Dosage: UNK
     Dates: start: 20180813
  16. GEMCITABINE [Suspect]
     Active Substance: GEMCITABINE\GEMCITABINE HYDROCHLORIDE
     Dosage: 1000 MILLIGRAM/SQ. METER
     Route: 042
     Dates: start: 20180927
  17. ASCORBIC ACID. [Concomitant]
     Active Substance: ASCORBIC ACID
     Dosage: UNK
     Dates: start: 20180116
  18. SIMVASTATIN +PHARMA [Concomitant]
     Active Substance: SIMVASTATIN
     Dosage: UNK
     Dates: start: 20180720
  19. SENNA                              /00142201/ [Concomitant]
     Active Substance: SENNA LEAF
     Dosage: UNK
     Dates: start: 20180905
  20. DESONIDE. [Concomitant]
     Active Substance: DESONIDE
     Dosage: UNK
     Dates: start: 20180417
  21. DIAZEPAM. [Concomitant]
     Active Substance: DIAZEPAM
     Dosage: UNK
     Dates: start: 20170105
  22. NITROGLYCERIN. [Concomitant]
     Active Substance: NITROGLYCERIN
     Dosage: UNK
     Dates: start: 20060727
  23. ONDANSETRON                        /00955302/ [Concomitant]
     Dosage: UNK
     Dates: start: 20180828
  24. PROCHLORPERAZINE                   /00013302/ [Concomitant]
     Dosage: UNK
     Dates: start: 20180530

REACTIONS (3)
  - Hypotension [Recovered/Resolved]
  - Systemic inflammatory response syndrome [Recovered/Resolved]
  - Septic shock [Recovered/Resolved]

NARRATIVE: CASE EVENT DATE: 20180906
